FAERS Safety Report 22221464 (Version 1)
Quarter: 2023Q2

REPORT INFORMATION
  Report Type: Other
  Country: FR (occurrence: FR)
  Receive Date: 20230418
  Receipt Date: 20230418
  Transmission Date: 20230721
  Serious: Yes (Hospitalization)
  Sender: FDA-Public Use
  Company Number: None

PATIENT

DRUGS (2)
  1. SILDENAFIL [Suspect]
     Active Substance: SILDENAFIL
     Indication: Weight decreased
     Dosage: UNK
     Route: 048
     Dates: start: 202301, end: 20230318
  2. SIBUTRAMINE [Suspect]
     Active Substance: SIBUTRAMINE
     Indication: Weight decreased
     Dosage: UNK
     Route: 048
     Dates: start: 202301, end: 20230318

REACTIONS (4)
  - Hemiparesis [Recovered/Resolved]
  - Motor dysfunction [Recovered/Resolved]
  - Agitation [Recovered/Resolved]
  - Headache [Recovered/Resolved]

NARRATIVE: CASE EVENT DATE: 20230318
